FAERS Safety Report 10312293 (Version 2)
Quarter: 2014Q3

REPORT INFORMATION
  Report Type: Spontaneous
  Country: VE (occurrence: VE)
  Receive Date: 20140718
  Receipt Date: 20140826
  Transmission Date: 20150326
  Serious: Yes (Hospitalization)
  Sender: FDA-Public Use
  Company Number: VE-ROCHE-1434985

PATIENT
  Age: 65 Year
  Sex: Male

DRUGS (1)
  1. XOLAIR [Suspect]
     Active Substance: OMALIZUMAB
     Indication: ASTHMA
     Route: 065

REACTIONS (11)
  - Pyrexia [Recovering/Resolving]
  - Epstein-Barr virus infection [Recovering/Resolving]
  - Diarrhoea [Recovering/Resolving]
  - Neutrophilia [Recovering/Resolving]
  - Sepsis [Recovered/Resolved]
  - Lung disorder [Recovering/Resolving]
  - Pneumonia [Recovered/Resolved]
  - Malaise [Recovering/Resolving]
  - White blood cell count increased [Recovering/Resolving]
  - Shock [Recovering/Resolving]
  - Vomiting [Recovering/Resolving]
